FAERS Safety Report 13279011 (Version 1)
Quarter: 2017Q1

REPORT INFORMATION
  Report Type: Spontaneous
  Country: US (occurrence: US)
  Receive Date: 20170228
  Receipt Date: 20170228
  Transmission Date: 20170428
  Serious: Yes (Hospitalization, Other)
  Sender: FDA-Public Use
  Company Number: US-ALLERGAN-1676273US

PATIENT
  Age: 68 Year
  Sex: Female
  Weight: 98.9 kg

DRUGS (3)
  1. LYRICA [Suspect]
     Active Substance: PREGABALIN
     Indication: FIBROMYALGIA
     Dosage: 75 MG, BID
     Route: 048
     Dates: start: 201604, end: 2016
  2. SAVELLA [Suspect]
     Active Substance: MILNACIPRAN HYDROCHLORIDE
     Indication: FIBROMYALGIA
     Dosage: 100 MG, BID
     Route: 048
     Dates: end: 20160712
  3. LYRICA [Suspect]
     Active Substance: PREGABALIN
     Dosage: 150 MG, BID
     Route: 048
     Dates: start: 2016, end: 201607

REACTIONS (11)
  - Weight decreased [Unknown]
  - Drug interaction [Recovered/Resolved]
  - Pain [Unknown]
  - Fall [Recovered/Resolved]
  - Generalised oedema [Recovering/Resolving]
  - Diabetes mellitus [Unknown]
  - Drug hypersensitivity [Recovered/Resolved]
  - Peripheral swelling [Recovering/Resolving]
  - Mobility decreased [Recovering/Resolving]
  - Burning sensation [Not Recovered/Not Resolved]
  - Nerve injury [Unknown]

NARRATIVE: CASE EVENT DATE: 2016
